FAERS Safety Report 7774718-7 (Version None)
Quarter: 2011Q3

REPORT INFORMATION
  Report Type: 
  Country: None (occurrence: None)
  Receive Date: 20110923
  Receipt Date: 20110919
  Transmission Date: 20111222
  Serious: Yes (Hospitalization, Other)
  Sender: FDA-Public Use
  Company Number: CN-ROCHE-803206

PATIENT
  Age: 70 Year
  Sex: Female

DRUGS (9)
  1. MYCOPHENOLATE MOFETIL (CELLCEPT) [Suspect]
     Dosage: DOSING AMOUNT 750 MG IN THE MORNING, 500 MG IN THE EVENING.
     Route: 048
  2. PREDNISONE [Suspect]
     Indication: RENAL TRANSPLANT
     Route: 048
     Dates: start: 20000712
  3. NEORAL [Suspect]
     Indication: RENAL TRANSPLANT
     Route: 048
     Dates: start: 20000712
  4. MYCOPHENOLATE MOFETIL (CELLCEPT) [Suspect]
     Route: 048
  5. MYCOPHENOLATE MOFETIL (CELLCEPT) [Suspect]
     Dosage: DOSING AMOUNT 750 MG IN THE MORNING, 500 MG IN THE EVENING.
     Route: 048
  6. NEORAL [Suspect]
     Route: 048
     Dates: end: 20101201
  7. RAPAMUNE [Concomitant]
     Indication: RENAL TRANSPLANT
     Route: 048
     Dates: start: 20101201
  8. PREDNISONE [Suspect]
     Route: 048
  9. MYCOPHENOLATE MOFETIL (CELLCEPT) [Suspect]
     Indication: RENAL TRANSPLANT
     Route: 048
     Dates: start: 20000712

REACTIONS (3)
  - OSTEONECROSIS [None]
  - SKIN CANCER [None]
  - BASAL CELL CARCINOMA [None]
